FAERS Safety Report 15891020 (Version 2)
Quarter: 2019Q2

REPORT INFORMATION
  Report Type: Spontaneous
  Country: MY (occurrence: MY)
  Receive Date: 20190130
  Receipt Date: 20190529
  Transmission Date: 20190711
  Serious: Yes (Hospitalization)
  Sender: FDA-Public Use
  Company Number: MY-MYLANLABS-2019M1008155

PATIENT
  Age: 20 Year
  Sex: Male

DRUGS (4)
  1. PHENYTOIN. [Suspect]
     Active Substance: PHENYTOIN
     Indication: PARTIAL SEIZURES
     Dosage: LATER, DOUBLED THE PHENYTOIN DOSE
     Route: 048
  2. VALPROIC ACID. [Interacting]
     Active Substance: VALPROIC ACID
     Indication: PARTIAL SEIZURES
     Dosage: 600/400 MG TWICE DAILY; FURTHER INCREASED DOSE TO 600/800 MG TWICE DAILY
     Route: 065
  3. VALPROIC ACID. [Interacting]
     Active Substance: VALPROIC ACID
     Dosage: 400 MILLIGRAM
     Route: 065
  4. VALPROIC ACID. [Interacting]
     Active Substance: VALPROIC ACID
     Dosage: 600/800 MG TWICE DAILY; FURTHER CONTINUED AT 400MG TWICE DAILY
     Route: 065

REACTIONS (8)
  - Labelled drug-drug interaction medication error [Recovered/Resolved]
  - Intentional product misuse [Recovered/Resolved]
  - Blindness transient [Recovered/Resolved]
  - Delirium [Recovered/Resolved]
  - Abdominal pain [Recovered/Resolved]
  - Toxicity to various agents [Recovered/Resolved]
  - Fall [Recovered/Resolved]
  - Nystagmus [Recovered/Resolved]
